FAERS Safety Report 19306951 (Version 3)
Quarter: 2021Q3

REPORT INFORMATION
  Report Type: Spontaneous
  Country: US (occurrence: US)
  Receive Date: 20210525
  Receipt Date: 20210804
  Transmission Date: 20211014
  Serious: Yes (Other)
  Sender: FDA-Public Use
  Company Number: US-BAUSCH-BL-2021-017370

PATIENT
  Age: 72 Year
  Sex: Male
  Weight: 72.64 kg

DRUGS (6)
  1. APRISO [Suspect]
     Active Substance: MESALAMINE
     Route: 048
     Dates: start: 2020, end: 2020
  2. APRISO [Suspect]
     Active Substance: MESALAMINE
     Route: 048
     Dates: start: 2021, end: 2021
  3. APRISO [Suspect]
     Active Substance: MESALAMINE
     Indication: COLITIS ULCERATIVE
     Route: 048
  4. LIALDA [Concomitant]
     Active Substance: MESALAMINE
     Indication: COLITIS ULCERATIVE
  5. APRISO [Suspect]
     Active Substance: MESALAMINE
     Route: 048
     Dates: start: 2020, end: 2021
  6. APRISO [Suspect]
     Active Substance: MESALAMINE
     Route: 048
     Dates: start: 2021

REACTIONS (3)
  - Product prescribing error [Unknown]
  - Colitis ulcerative [Unknown]
  - Inappropriate schedule of product administration [Unknown]

NARRATIVE: CASE EVENT DATE: 2020
